FAERS Safety Report 18318393 (Version 1)
Quarter: 2020Q3

REPORT INFORMATION
  Report Type: Spontaneous
  Country: US (occurrence: US)
  Receive Date: 20200925
  Receipt Date: 20200925
  Transmission Date: 20201103
  Serious: Yes (Hospitalization)
  Sender: FDA-Public Use
  Company Number: None

PATIENT
  Sex: Female

DRUGS (10)
  1. CIPROFLOXACN [Concomitant]
     Active Substance: CIPROFLOXACIN
  2. CLONAZEPAM. [Concomitant]
     Active Substance: CLONAZEPAM
  3. AZITHROMYCIN ANHYDROUS. [Concomitant]
     Active Substance: AZITHROMYCIN ANHYDROUS
  4. HUMIRA [Suspect]
     Active Substance: ADALIMUMAB
     Indication: PSORIATIC ARTHROPATHY
     Dosage: 1 PEN QOWK SQ
     Route: 058
     Dates: start: 20180505
  5. BENZONATATE. [Concomitant]
     Active Substance: BENZONATATE
  6. ESCITALOPRAM [Concomitant]
     Active Substance: ESCITALOPRAM OXALATE
  7. LEXAPRO [Concomitant]
     Active Substance: ESCITALOPRAM OXALATE
  8. CLONAZEP ODT [Concomitant]
  9. ESTRADIOL. [Concomitant]
     Active Substance: ESTRADIOL
  10. XOFLUZA [Concomitant]
     Active Substance: BALOXAVIR MARBOXIL

REACTIONS (3)
  - Therapy interrupted [None]
  - Cardiac pacemaker insertion [None]
  - Disease progression [None]
